FAERS Safety Report 9912352 (Version 1)
Quarter: 2014Q1

REPORT INFORMATION
  Report Type: Spontaneous
  Country: US (occurrence: US)
  Receive Date: 20140220
  Receipt Date: 20140220
  Transmission Date: 20141002
  Serious: No
  Sender: FDA-Public Use
  Company Number: US-BIOGENIDEC-2014BI015609

PATIENT
  Age: 55 Year
  Sex: Female

DRUGS (1)
  1. TYSABRI [Suspect]
     Indication: MULTIPLE SCLEROSIS
     Route: 042
     Dates: start: 20121004

REACTIONS (4)
  - Deafness unilateral [Recovered/Resolved]
  - Pain in extremity [Recovered/Resolved]
  - Osteoporosis [Not Recovered/Not Resolved]
  - Sensory disturbance [Not Recovered/Not Resolved]
